FAERS Safety Report 16305953 (Version 2)
Quarter: 2020Q4

REPORT INFORMATION
  Report Type: Spontaneous
  Country: US (occurrence: US)
  Receive Date: 20190513
  Receipt Date: 20201221
  Transmission Date: 20210113
  Serious: Yes (Death, Hospitalization, Other)
  Sender: FDA-Public Use
  Company Number: US-ASTRAZENECA-2019SE66036

PATIENT
  Age: 57 Year
  Sex: Female
  Weight: 102.1 kg

DRUGS (61)
  1. ALBUTEROL SULPHATE [Concomitant]
     Active Substance: ALBUTEROL
  2. ZINC. [Concomitant]
     Active Substance: ZINC
  3. NYSTATIN. [Concomitant]
     Active Substance: NYSTATIN
  4. TRAVATAN [Concomitant]
     Active Substance: TRAVOPROST
     Indication: GLAUCOMA
  5. ISOSORBIDE MONONITRATE. [Concomitant]
     Active Substance: ISOSORBIDE MONONITRATE
  6. HYDROMORPHONE [Concomitant]
     Active Substance: HYDROMORPHONE
  7. DIPHENOXYLA/ATROPINE [Concomitant]
  8. ATORVASTATIN [Concomitant]
     Active Substance: ATORVASTATIN
  9. CETIRIZINE [Concomitant]
     Active Substance: CETIRIZINE HYDROCHLORIDE
  10. DOXYCYCLINE MONO [Concomitant]
     Active Substance: DOXYCYCLINE
  11. LORAZEPAM. [Concomitant]
     Active Substance: LORAZEPAM
  12. NEXIUM [Suspect]
     Active Substance: ESOMEPRAZOLE MAGNESIUM
     Indication: GASTROOESOPHAGEAL REFLUX DISEASE
     Route: 048
     Dates: start: 201601, end: 201708
  13. NEXIUM [Suspect]
     Active Substance: ESOMEPRAZOLE MAGNESIUM
     Indication: GASTROOESOPHAGEAL REFLUX DISEASE
     Route: 048
     Dates: start: 20160806
  14. PREVACID [Suspect]
     Active Substance: LANSOPRAZOLE
     Indication: GASTROOESOPHAGEAL REFLUX DISEASE
     Route: 065
     Dates: start: 201601, end: 201708
  15. LYRICA [Concomitant]
     Active Substance: PREGABALIN
     Indication: PAIN
  16. ZAROXOLYN [Concomitant]
     Active Substance: METOLAZONE
     Indication: FLUID RETENTION
  17. ADVAIR DISKUS [Concomitant]
     Active Substance: FLUTICASONE PROPIONATE\SALMETEROL XINAFOATE
     Indication: ASTHMA
  18. LANTUS [Concomitant]
     Active Substance: INSULIN GLARGINE
     Indication: DIABETES MELLITUS
  19. ALBUTEROL. [Concomitant]
     Active Substance: ALBUTEROL
     Indication: DYSPNOEA
  20. POTASSIUM CHLORIDE. [Concomitant]
     Active Substance: POTASSIUM CHLORIDE
  21. SLOW-MAG [Concomitant]
     Active Substance: MAGNESIUM CHLORIDE
  22. DOXYCYCLINE HYCLATE. [Concomitant]
     Active Substance: DOXYCYCLINE HYCLATE
  23. DIALYVITE [Concomitant]
     Active Substance: ASCORBIC ACID\BIOTIN\CALCIUM PANTOTHENATE\COBALAMIN\FOLIC ACID\NIACINAMIDE\PYRIDOXINE HYDROCHLORIDE\RIBOFLAVIN\THIAMINE MONONITRATE
  24. INDOMETHACIN. [Concomitant]
     Active Substance: INDOMETHACIN
  25. PREDNISONE. [Concomitant]
     Active Substance: PREDNISONE
  26. NEXIUM [Suspect]
     Active Substance: ESOMEPRAZOLE MAGNESIUM
     Indication: GASTROOESOPHAGEAL REFLUX DISEASE
     Route: 048
     Dates: start: 2001, end: 2016
  27. NOVOLOG [Concomitant]
     Active Substance: INSULIN ASPART
     Indication: DIABETES MELLITUS
  28. LASIX [Concomitant]
     Active Substance: FUROSEMIDE
     Indication: FLUID RETENTION
  29. NITROFURANTOIN. [Concomitant]
     Active Substance: NITROFURANTOIN
  30. FENTANYL. [Concomitant]
     Active Substance: FENTANYL
  31. ELIQUIS [Concomitant]
     Active Substance: APIXABAN
  32. CITALOPRAM [Concomitant]
     Active Substance: CITALOPRAM HYDROBROMIDE
  33. BYDUREON [Concomitant]
     Active Substance: EXENATIDE
  34. OXYCODONE HYDROCHLORIDE. [Concomitant]
     Active Substance: OXYCODONE HYDROCHLORIDE
  35. METOPROLOL. [Concomitant]
     Active Substance: METOPROLOL
  36. NIASPAN [Concomitant]
     Active Substance: NIACIN
  37. COLCRYS [Concomitant]
     Active Substance: COLCHICINE
  38. NORVASC [Concomitant]
     Active Substance: AMLODIPINE BESYLATE
     Indication: BLOOD PRESSURE ABNORMAL
  39. ULORIC [Concomitant]
     Active Substance: FEBUXOSTAT
     Indication: GOUT
  40. PROZAC [Concomitant]
     Active Substance: FLUOXETINE HYDROCHLORIDE
  41. LEVOTHYROXINE SODIUM. [Concomitant]
     Active Substance: LEVOTHYROXINE SODIUM
  42. ONDANSETRON [Concomitant]
     Active Substance: ONDANSETRON
  43. SUCRALFATE. [Concomitant]
     Active Substance: SUCRALFATE
  44. WARFARIN [Concomitant]
     Active Substance: WARFARIN
  45. IPRATROPIUM/ ALBUTERO [Concomitant]
  46. FLUVIRIN NOS [Concomitant]
     Active Substance: INFLUENZA VIRUS VACCINE
  47. PREVACID [Suspect]
     Active Substance: LANSOPRAZOLE
     Indication: GASTROOESOPHAGEAL REFLUX DISEASE
     Dosage: GENERIC
     Route: 065
     Dates: start: 2016, end: 2017
  48. PREVACID [Suspect]
     Active Substance: LANSOPRAZOLE
     Indication: GASTROOESOPHAGEAL REFLUX DISEASE
     Dosage: GENERIC
     Route: 048
     Dates: start: 20170503
  49. LEVOTHYROXINE. [Concomitant]
     Active Substance: LEVOTHYROXINE
     Indication: THYROID DISORDER
  50. VITAMIN D [Concomitant]
     Active Substance: VITAMIN D NOS
  51. SULFAMETHOX/TRIME [Concomitant]
  52. CEPHALEXIN. [Concomitant]
     Active Substance: CEPHALEXIN
  53. LATANOPROST. [Concomitant]
     Active Substance: LATANOPROST
  54. HYDROCODONE/ APAP [Concomitant]
     Active Substance: ACETAMINOPHEN\HYDROCODONE
  55. CALCIUM ACETATE. [Concomitant]
     Active Substance: CALCIUM ACETATE
  56. ASPIRIN. [Concomitant]
     Active Substance: ASPIRIN
     Indication: CARDIAC DISORDER
  57. TUMS [Concomitant]
     Active Substance: CALCIUM CARBONATE
  58. OXYCODONE AND ACETAMINOPHEN [Concomitant]
     Active Substance: ACETAMINOPHEN\OXYCODONE HYDROCHLORIDE
  59. CLINDAMYCIN HYDROCHLORIDE. [Concomitant]
     Active Substance: CLINDAMYCIN HYDROCHLORIDE
  60. AMOXICILLIN. [Concomitant]
     Active Substance: AMOXICILLIN
  61. CARVEDILOL. [Concomitant]
     Active Substance: CARVEDILOL

REACTIONS (7)
  - Gastrointestinal haemorrhage [Fatal]
  - Chronic kidney disease [Unknown]
  - Acute kidney injury [Unknown]
  - Blood loss anaemia [Fatal]
  - Hyperparathyroidism secondary [Unknown]
  - Shock haemorrhagic [Fatal]
  - End stage renal disease [Unknown]

NARRATIVE: CASE EVENT DATE: 2011
